FAERS Safety Report 24327782 (Version 1)
Quarter: 2024Q3

REPORT INFORMATION
  Report Type: Spontaneous
  Country: US (occurrence: None)
  Receive Date: 20240917
  Receipt Date: 20240917
  Transmission Date: 20241017
  Serious: No
  Sender: Public
  Company Number: None

PATIENT
  Age: 73 Year
  Sex: Female
  Weight: 75.7 kg

DRUGS (2)
  1. CARBOPLATIN [Suspect]
     Active Substance: CARBOPLATIN
     Dates: end: 20240820
  2. PACLITAXEL [Suspect]
     Active Substance: PACLITAXEL
     Dates: end: 20240820

REACTIONS (4)
  - Abdominal pain [None]
  - Sneezing [None]
  - Cough [None]
  - Muscle disorder [None]

NARRATIVE: CASE EVENT DATE: 20240828
